FAERS Safety Report 20739304 (Version 1)
Quarter: 2022Q2

REPORT INFORMATION
  Report Type: Report from Study
  Country: TW (occurrence: TW)
  Receive Date: 20220422
  Receipt Date: 20220422
  Transmission Date: 20220721
  Serious: Yes (Death, Hospitalization, Other)
  Sender: FDA-Public Use
  Company Number: TW-TAKEDA-2022TUS026921

PATIENT
  Age: 50 Year
  Sex: Male

DRUGS (1)
  1. VEDOLIZUMAB [Suspect]
     Active Substance: VEDOLIZUMAB
     Indication: Crohn^s disease
     Dosage: 300 MILLIGRAM, Q4WEEKS
     Route: 065
     Dates: start: 20211207, end: 20220214

REACTIONS (11)
  - Death [Fatal]
  - Failure to anastomose [Unknown]
  - Haemorrhage [Unknown]
  - Delirium [Unknown]
  - Duodenal rupture [Unknown]
  - Abdominal abscess [Unknown]
  - Intestinal fistula [Unknown]
  - Small intestinal perforation [Unknown]
  - Pneumonia [Unknown]
  - Impaired healing [Unknown]
  - Wound infection [Unknown]

NARRATIVE: CASE EVENT DATE: 20220222
